FAERS Safety Report 4305745-X (Version None)
Quarter: 2004Q1

REPORT INFORMATION
  Report Type: 
  Country: None (occurrence: None)
  Receive Date: 20040225
  Receipt Date: 20040209
  Transmission Date: 20041129
  Serious: Yes (Other)
  Sender: FDA-Public Use
  Company Number: 2004-DE-00678GD

PATIENT
  Sex: Female

DRUGS (5)
  1. CYCLOPHOSPHAMIDE [Suspect]
     Indication: BREAST CANCER
     Dosage: 1875 MG/M2/D ON DAYS -6, -5, -4, AS 1-H INFUSION, IV
     Route: 042
  2. CISPLATIN [Suspect]
     Indication: BREAST CANCER
     Dosage: 55 MG/M2/D ON DAYS -6, -5, -4, CONTINUOUS INFUSION, IV
     Route: 042
  3. CARMUSTINE [Suspect]
     Indication: BREAST CANCER
     Dosage: 600 MG/M2 AS A 2-H INFUSION ON DAY -3, IV
     Route: 042
  4. FILGRASTIM (FILGRASTIM) [Concomitant]
  5. FLUIDS [Concomitant]

REACTIONS (1)
  - PNEUMONIA [None]
